FAERS Safety Report 16588634 (Version 3)
Quarter: 2019Q3

REPORT INFORMATION
  Report Type: Report from Study
  Country: US (occurrence: US)
  Receive Date: 20190718
  Receipt Date: 20190925
  Transmission Date: 20191004
  Serious: Yes (Hospitalization, Other)
  Sender: FDA-Public Use
  Company Number: US-PFIZER INC-2019251311

PATIENT
  Age: 57 Year
  Sex: Female

DRUGS (2)
  1. IBRANCE [Suspect]
     Active Substance: PALBOCICLIB
     Dosage: 100 MG, CYCLIC (DAILY, 21 DAYS OF 28 DAY CYCLE)
     Route: 048
     Dates: start: 20190703
  2. IBRANCE [Suspect]
     Active Substance: PALBOCICLIB
     Indication: BREAST CANCER FEMALE
     Dosage: 125 MG, CYCLIC (DAILY FOR 21 DAYS OF 28 DAYS CYCLE)
     Route: 048
     Dates: start: 20190523, end: 20190617

REACTIONS (13)
  - Pyrexia [Recovered/Resolved]
  - Dysphagia [Unknown]
  - Pain [Unknown]
  - Nausea [Unknown]
  - Pain in extremity [Recovered/Resolved]
  - Leukopenia [Recovering/Resolving]
  - Cough [Recovered/Resolved]
  - Neuropathy peripheral [Unknown]
  - Bone marrow failure [Unknown]
  - Oropharyngeal pain [Recovered/Resolved]
  - Restlessness [Unknown]
  - Neutropenia [Recovering/Resolving]
  - Fatigue [Unknown]

NARRATIVE: CASE EVENT DATE: 2019
